FAERS Safety Report 10266108 (Version 2)
Quarter: 2014Q3

REPORT INFORMATION
  Report Type: Spontaneous
  Country: SK (occurrence: SK)
  Receive Date: 20140627
  Receipt Date: 20140716
  Transmission Date: 20150326
  Serious: Yes (Hospitalization, Other)
  Sender: FDA-Public Use
  Company Number: SK-ELI_LILLY_AND_COMPANY-SK201406006153

PATIENT
  Age: 40 Year
  Sex: Female

DRUGS (5)
  1. ZYPADHERA [Suspect]
     Active Substance: OLANZAPINE PAMOATE
     Indication: SCHIZOPHRENIA, PARANOID TYPE
     Dosage: 300 MG, 2/M
     Route: 030
     Dates: start: 201110, end: 20140602
  2. LEPONEX [Concomitant]
     Active Substance: CLOZAPINE
     Dosage: 150 MG, QD
     Dates: start: 201110
  3. LEPONEX [Concomitant]
     Active Substance: CLOZAPINE
     Indication: PRODUCT USED FOR UNKNOWN INDICATION
     Dosage: 1 DF, UNK
     Dates: start: 1992
  4. LEPONEX [Concomitant]
     Active Substance: CLOZAPINE
     Dosage: 100 MG, QD
     Route: 065
  5. LEXAURIN [Concomitant]
     Active Substance: BROMAZEPAM
     Indication: PRODUCT USED FOR UNKNOWN INDICATION
     Dosage: UNK, UNKNOWN
     Route: 065

REACTIONS (5)
  - Schizophrenia [None]
  - Cellulitis [Recovered/Resolved]
  - Drug ineffective [None]
  - Cellulitis staphylococcal [None]
  - Schizophrenia, paranoid type [Recovered/Resolved]

NARRATIVE: CASE EVENT DATE: 20140530
